FAERS Safety Report 6700028-2 (Version None)
Quarter: 2010Q2

REPORT INFORMATION
  Report Type: 
  Country: None (occurrence: None)
  Receive Date: 20100428
  Receipt Date: 20100419
  Transmission Date: 20101027
  Serious: Yes (Hospitalization, Other)
  Sender: FDA-Public Use
  Company Number: US-AMGEN-QUU407337

PATIENT
  Sex: Female

DRUGS (1)
  1. ENBREL [Suspect]
     Indication: PSORIASIS
     Route: 058

REACTIONS (8)
  - ABDOMINAL PAIN [None]
  - ANORECTAL DISCOMFORT [None]
  - GASTRIC BYPASS [None]
  - GASTRIC ULCER [None]
  - NAUSEA [None]
  - PROCTITIS FUNGAL [None]
  - PSORIASIS [None]
  - VULVOVAGINAL DISCOMFORT [None]
